FAERS Safety Report 5565332-2 (Version None)
Quarter: 2007Q4

REPORT INFORMATION
  Report Type: 
  Country: None (occurrence: None)
  Receive Date: 20071218
  Receipt Date: 20071206
  Transmission Date: 20080405
  Serious: Yes (Other)
  Sender: FDA-Public Use
  Company Number: CH-PFIZER INC-2007088936

PATIENT
  Sex: Male

DRUGS (5)
  1. CAVERJECT [Suspect]
     Indication: ERECTILE DYSFUNCTION
  2. BETASERC [Concomitant]
  3. ASPIRIN [Concomitant]
  4. SYMBICORT [Concomitant]
  5. BRICANYL [Concomitant]

REACTIONS (3)
  - DIZZINESS [None]
  - MENIERE'S DISEASE [None]
  - VESTIBULAR DISORDER [None]
